FAERS Safety Report 7422161-2 (Version None)
Quarter: 2011Q2

REPORT INFORMATION
  Report Type: 
  Country: None (occurrence: None)
  Receive Date: 20110418
  Receipt Date: 20101102
  Transmission Date: 20111010
  Serious: Yes (Hospitalization)
  Sender: FDA-Public Use
  Company Number: US-BAYER-201027820NA

PATIENT
  Age: 20 Year
  Sex: Female
  Weight: 59 kg

DRUGS (3)
  1. ULTRAM [Concomitant]
     Dosage: UNK UNK, PRN
  2. ONE-A-DAY [VIT C,B12,D2,B3,B6,RETINOL,B2,B1 MONONITR] [Concomitant]
     Dosage: 1 U, QD
     Route: 048
  3. YASMIN [Suspect]
     Indication: ORAL CONTRACEPTION
     Route: 048
     Dates: start: 20070829, end: 20080705

REACTIONS (2)
  - DEEP VEIN THROMBOSIS [None]
  - PAIN IN EXTREMITY [None]
